FAERS Safety Report 11909715 (Version 1)
Quarter: 2016Q1

REPORT INFORMATION
  Report Type: Spontaneous
  Country: US (occurrence: None)
  Receive Date: 20160111
  Receipt Date: 20160111
  Transmission Date: 20160526
  Serious: Yes (Hospitalization)
  Sender: FDA-Public Use
  Company Number: None

PATIENT
  Age: 37 Day
  Sex: Female
  Weight: 77.11 kg

DRUGS (2)
  1. INFED [Suspect]
     Active Substance: IRON DEXTRAN
     Indication: BLOOD IRON DECREASED
     Dosage: ONE TREATMENT
  2. SYNTHROID [Concomitant]
     Active Substance: LEVOTHYROXINE SODIUM

REACTIONS (25)
  - Muscle spasms [None]
  - Anaphylactic shock [None]
  - Dysgeusia [None]
  - Vision blurred [None]
  - Headache [None]
  - Panic attack [None]
  - Anxiety [None]
  - Hypersensitivity [None]
  - Dizziness [None]
  - Back pain [None]
  - Abdominal pain upper [None]
  - Respiratory disorder [None]
  - Disorientation [None]
  - Pruritus [None]
  - Fatigue [None]
  - Wheezing [None]
  - Pain [None]
  - Pain of skin [None]
  - Diarrhoea [None]
  - Urticaria [None]
  - Arthralgia [None]
  - Feeling hot [None]
  - Chest pain [None]
  - Depression [None]
  - Paraesthesia [None]

NARRATIVE: CASE EVENT DATE: 20150514
